FAERS Safety Report 5842546-5 (Version None)
Quarter: 2008Q3

REPORT INFORMATION
  Report Type: 
  Country: None (occurrence: None)
  Receive Date: 20080812
  Receipt Date: 20080801
  Transmission Date: 20090109
  Serious: Yes (Death, Hospitalization, Disabling)
  Sender: FDA-Public Use
  Company Number: GB-PFIZER INC-2008061756

PATIENT
  Sex: Male
  Weight: 78 kg

DRUGS (2)
  1. GENOTROPIN [Suspect]
     Indication: HYPOPITUITARISM
  2. HYDROCORTISONE [Concomitant]
     Route: 048

REACTIONS (2)
  - NEOPLASM RECURRENCE [None]
  - OESOPHAGEAL CARCINOMA [None]
